FAERS Safety Report 12418798 (Version 1)
Quarter: 2016Q2

REPORT INFORMATION
  Report Type: Spontaneous
  Country: US (occurrence: US)
  Receive Date: 20160531
  Receipt Date: 20160531
  Transmission Date: 20160815
  Serious: No
  Sender: FDA-Public Use
  Company Number: US-PFIZER INC-2016251157

PATIENT
  Age: 48 Year
  Sex: Female
  Weight: 139 kg

DRUGS (1)
  1. GABAPENTIN. [Suspect]
     Active Substance: GABAPENTIN
     Indication: FIBROMYALGIA
     Dosage: UNK
     Dates: start: 2015, end: 2016

REACTIONS (8)
  - Drug hypersensitivity [Unknown]
  - Feeling drunk [Recovered/Resolved]
  - Myalgia [Recovered/Resolved]
  - Hypokinesia [Recovered/Resolved]
  - Product use issue [Unknown]
  - Pain [Recovered/Resolved]
  - Condition aggravated [Recovered/Resolved]
  - Muscular weakness [Recovered/Resolved]
